FAERS Safety Report 4386260-4 (Version None)
Quarter: 2004Q2

REPORT INFORMATION
  Report Type: 
  Country: None (occurrence: None)
  Receive Date: 20040623
  Receipt Date: 20040610
  Transmission Date: 20050107
  Serious: Yes (Death)
  Sender: FDA-Public Use
  Company Number: JP-JNJFOC-20031204160

PATIENT
  Age: 72 Year
  Sex: Male

DRUGS (5)
  1. FENTANYL [Suspect]
     Indication: CANCER PAIN
     Dosage: 2.5 MG, 1 IN 3 DAY, TRANSDERMAL
     Route: 062
     Dates: start: 20031203, end: 20031206
  2. FLURBIPROPEN AXETIL (FLURBIPROFEN AXETIL) [Concomitant]
  3. CIMETIDINE [Concomitant]
  4. VITAMIN B COMPLEX (B-KOMPLEX ^LECIVA^) [Concomitant]
  5. DEXAMETHASONE [Concomitant]

REACTIONS (1)
  - RESPIRATORY RATE DECREASED [None]
